FAERS Safety Report 5189800-0 (Version None)
Quarter: 2006Q4

REPORT INFORMATION
  Report Type: 
  Country: None (occurrence: None)
  Receive Date: 20061218
  Receipt Date: 20061205
  Transmission Date: 20070319
  Serious: Yes (Death)
  Sender: FDA-Public Use
  Company Number: 233269

PATIENT
  Age: 84 Year
  Sex: Male
  Weight: 90.7 kg

DRUGS (8)
  1. AVASTIN [Suspect]
     Indication: HEPATIC NEOPLASM MALIGNANT
     Dosage: 927 MG, INTRAVENOUS
     Route: 042
     Dates: start: 20060920
  2. SPIRONOLACTONE [Concomitant]
  3. LASIX [Concomitant]
  4. GLYBURIDE [Concomitant]
  5. POTASSIUM CHLORIDE [Concomitant]
  6. CISPLATIN [Concomitant]
  7. DOXORUBICIN HCL [Concomitant]
  8. MITOMYCIN [Concomitant]

REACTIONS (14)
  - ASCITES [None]
  - AZOTAEMIA [None]
  - DEHYDRATION [None]
  - DYSPNOEA [None]
  - FATIGUE [None]
  - HEPATIC CIRRHOSIS [None]
  - HEPATIC ENCEPHALOPATHY [None]
  - HEPATIC LESION [None]
  - MENTAL STATUS CHANGES [None]
  - MULTI-ORGAN FAILURE [None]
  - RENAL FAILURE [None]
  - SEPSIS [None]
  - SPLENOMEGALY [None]
  - WAIST CIRCUMFERENCE INCREASED [None]
